FAERS Safety Report 24847568 (Version 9)
Quarter: 2025Q2

REPORT INFORMATION
  Report Type: Report from Study
  Country: JP (occurrence: JP)
  Receive Date: 20250116
  Receipt Date: 20250506
  Transmission Date: 20250716
  Serious: Yes (Life-Threatening, Hospitalization)
  Sender: SANOFI AVENTIS
  Company Number: JP-SAKK-2025SA011382AA

PATIENT
  Age: 67 Year
  Sex: Female

DRUGS (12)
  1. SUTIMLIMAB [Suspect]
     Active Substance: SUTIMLIMAB
     Indication: Cold type haemolytic anaemia
     Dosage: 50 MG/ML, QOW
     Route: 041
     Dates: start: 20240925
  2. SUTIMLIMAB [Suspect]
     Active Substance: SUTIMLIMAB
     Route: 041
     Dates: start: 20250129
  3. SUTIMLIMAB [Suspect]
     Active Substance: SUTIMLIMAB
     Dosage: 50 MG/ML, QOW
     Route: 041
     Dates: start: 20250208
  4. ETIZOLAM [Concomitant]
     Active Substance: ETIZOLAM
     Indication: Panic disorder
     Dosage: 0.5 MG, TID
     Route: 048
     Dates: start: 2023
  5. ATENOLOL [Concomitant]
     Active Substance: ATENOLOL
     Indication: Arrhythmia
     Dosage: 25 MG, BID
     Route: 048
     Dates: start: 2010, end: 20250110
  6. EZETIMIBE [Concomitant]
     Active Substance: EZETIMIBE
     Indication: Dyslipidaemia
     Dosage: 10 MG, QD
     Route: 048
  7. VONOPRAZAN FUMARATE [Concomitant]
     Active Substance: VONOPRAZAN FUMARATE
     Indication: Gastrooesophageal reflux disease
     Dosage: 10 MG, BID
     Route: 048
     Dates: start: 2023
  8. BETAHISTINE MESILATE [Concomitant]
     Active Substance: BETAHISTINE MESILATE
     Indication: Panic disorder
     Dosage: 12 MG, TID
     Route: 048
     Dates: start: 2023
  9. TEPRENONE [Concomitant]
     Active Substance: TEPRENONE
     Indication: Gastric mucosal lesion
     Dosage: 25 MG, BID
     Route: 048
  10. ETHYL LOFLAZEPATE [Concomitant]
     Active Substance: ETHYL LOFLAZEPATE
     Indication: Insomnia
     Dosage: 1 MG, QD
     Route: 048
     Dates: start: 2023
  11. MAGNESIUM OXIDE [Concomitant]
     Active Substance: MAGNESIUM OXIDE
     Indication: Constipation
     Dosage: 330 MG, QD
     Route: 048
  12. POTASSIUM CHLORIDE\SODIUM CHLORIDE\SODIUM LACTATE [Concomitant]
     Active Substance: POTASSIUM CHLORIDE\SODIUM CHLORIDE\SODIUM LACTATE
     Indication: Electrolyte substitution therapy
     Dosage: 4 G, TID
     Route: 048

REACTIONS (5)
  - Neutropenia [Recovered/Resolved]
  - Oedema peripheral [Recovered/Resolved]
  - Pyrexia [Recovered/Resolved]
  - Stomatitis [Not Recovered/Not Resolved]
  - Medication error [Unknown]

NARRATIVE: CASE EVENT DATE: 20241113
